FAERS Safety Report 17314666 (Version 1)
Quarter: 2020Q1

REPORT INFORMATION
  Report Type: Spontaneous
  Country: US (occurrence: US)
  Receive Date: 20200108
  Receipt Date: 20200108
  Transmission Date: 20200409
  Serious: Yes (Hospitalization)
  Sender: FDA-Public Use
  Company Number: None

PATIENT
  Age: 45 Year
  Sex: Male

DRUGS (8)
  1. COSENTYX [Suspect]
     Active Substance: SECUKINUMAB
     Indication: PSORIASIS
     Dosage: ?          OTHER FREQUENCY:EVERY 4 WEEKS;?
     Route: 058
     Dates: start: 20191008
  2. PROPRANOLOL TAB 10 MG [Concomitant]
  3. DEXILANT CAP 60 MG DR [Concomitant]
  4. PROAIR HFA AER [Concomitant]
  5. ESCITALOPRAM [Concomitant]
     Active Substance: ESCITALOPRAM OXALATE
  6. LORAZEPAM TAB 1 MG [Concomitant]
  7. PRAVASTATIN TAB 20 MG [Concomitant]
  8. ALBUTEROL NEB 0.083% [Concomitant]

REACTIONS (2)
  - Pneumonia [None]
  - Therapy cessation [None]
